FAERS Safety Report 23801090 (Version 1)
Quarter: 2024Q2

REPORT INFORMATION
  Report Type: Spontaneous
  Country: US (occurrence: US)
  Receive Date: 20240430
  Receipt Date: 20240430
  Transmission Date: 20240715
  Serious: No
  Sender: FDA-Public Use
  Company Number: US-JNJFOC-20240451593

PATIENT
  Age: 59 Year
  Sex: Female

DRUGS (1)
  1. ZYRTEC [Suspect]
     Active Substance: CETIRIZINE HYDROCHLORIDE
     Indication: Multiple allergies
     Dosage: AS PER DIRECTIONS
     Route: 065
     Dates: start: 20240416

REACTIONS (2)
  - Product dispensing error [Unknown]
  - Expired product administered [Unknown]

NARRATIVE: CASE EVENT DATE: 20240416
